FAERS Safety Report 5895124-6 (Version None)
Quarter: 2008Q3

REPORT INFORMATION
  Report Type: 
  Country: None (occurrence: None)
  Receive Date: 20080924
  Receipt Date: 20080911
  Transmission Date: 20090109
  Serious: Yes (Hospitalization)
  Sender: FDA-Public Use
  Company Number: FR-PFIZER INC-2008076785

PATIENT
  Age: 20 Year
  Sex: Female

DRUGS (2)
  1. CYTOTEC [Suspect]
     Indication: ABORTION
     Route: 048
     Dates: start: 20080821, end: 20080822
  2. CYTOTEC [Suspect]
     Route: 067
     Dates: start: 20080821, end: 20080822

REACTIONS (4)
  - ABORTION MISSED [None]
  - INTENTIONAL DRUG MISUSE [None]
  - INTENTIONAL OVERDOSE [None]
  - OFF LABEL USE [None]
